FAERS Safety Report 5558291-X (Version None)
Quarter: 2007Q4

REPORT INFORMATION
  Report Type: 
  Country: None (occurrence: None)
  Receive Date: 20071214
  Receipt Date: 20071207
  Transmission Date: 20080405
  Serious: Yes (Hospitalization)
  Sender: FDA-Public Use
  Company Number: ZA-GILEAD-2007-0014487

PATIENT
  Sex: Female

DRUGS (6)
  1. EMTRICITABINE/TENOFOVIR DISOPROXIL FUMARATE [Suspect]
     Indication: HIV INFECTION
     Route: 048
     Dates: start: 20060607, end: 20071206
  2. ATAZANAVIR SULFATE [Concomitant]
     Route: 048
     Dates: start: 20060607, end: 20071206
  3. RITONAVIR [Concomitant]
     Route: 048
     Dates: start: 20060607, end: 20071206
  4. MYPRODOL [Concomitant]
     Dates: start: 20071001
  5. ROBAXIN [Concomitant]
     Dates: start: 20071001
  6. NAUZINE/DIXIRIE [Concomitant]
     Dates: start: 20071001

REACTIONS (1)
  - MENINGITIS [None]
